FAERS Safety Report 7472701-2 (Version None)
Quarter: 2011Q2

REPORT INFORMATION
  Report Type: 
  Country: None (occurrence: None)
  Receive Date: 20110502
  Receipt Date: 20110419
  Transmission Date: 20111010
  Serious: Yes (Hospitalization, Other)
  Sender: FDA-Public Use
  Company Number: 2009SP023460

PATIENT
  Age: 23 Year
  Sex: Female
  Weight: 54.4316 kg

DRUGS (2)
  1. ASTHMA MEDICATION [Concomitant]
  2. NUVARING [Suspect]
     Indication: CONTRACEPTION
     Dosage: 1 DF
     Dates: start: 20070501, end: 20080701

REACTIONS (13)
  - MENTAL STATUS CHANGES [None]
  - SUBSTANCE ABUSE [None]
  - ABDOMINAL PAIN [None]
  - INFECTION [None]
  - HYPOKALAEMIA [None]
  - SUICIDE ATTEMPT [None]
  - VICTIM OF SEXUAL ABUSE [None]
  - TREATMENT NONCOMPLIANCE [None]
  - UNRESPONSIVE TO STIMULI [None]
  - PULMONARY EMBOLISM [None]
  - PREGNANCY [None]
  - BIPOLAR DISORDER [None]
  - INTENTIONAL OVERDOSE [None]
